FAERS Safety Report 6919896 (Version 2)
Quarter: 2014Q3

REPORT INFORMATION
  Report Type: Spontaneous
  Country: US (occurrence: None)
  Receive Date: 20090213
  Receipt Date: 20140926
  Transmission Date: 20150326
  Serious: Yes (Hospitalization, Other)
  Sender: FDA-Public Use
  Company Number: 2009S1001392

PATIENT
  Age: 64 Year
  Sex: Female
  Weight: 58.97 kg

DRUGS (7)
  1. VALIUM [Concomitant]
     Active Substance: DIAZEPAM
  2. CRESTOR [Concomitant]
     Active Substance: ROSUVASTATIN CALCIUM
  3. ASPIRIN. [Concomitant]
     Active Substance: ASPIRIN
  4. PHOSPHO-SODA [Suspect]
     Active Substance: SODIUM PHOSPHATE, DIBASIC\SODIUM PHOSPHATE, MONOBASIC
     Indication: COLONOSCOPY
     Dosage: PO
     Route: 048
     Dates: start: 20050526, end: 20050526
  5. LISINOPRIL. [Concomitant]
     Active Substance: LISINOPRIL
  6. AUGMENTIN [Concomitant]
     Active Substance: AMOXICILLIN\CLAVULANATE POTASSIUM
  7. TOPROL XL [Concomitant]
     Active Substance: METOPROLOL SUCCINATE

REACTIONS (17)
  - Vomiting [None]
  - Nausea [None]
  - Chest pain [None]
  - Blood potassium decreased [None]
  - Hyperparathyroidism secondary [None]
  - Constipation [None]
  - Renal failure chronic [None]
  - Anaemia [None]
  - Renal failure [None]
  - Iron deficiency anaemia [None]
  - Renal failure acute [None]
  - Nephrocalcinosis [None]
  - Troponin increased [None]
  - Dialysis [None]
  - Haemodialysis [None]
  - Blood sodium decreased [None]
  - Renal tubular necrosis [None]

NARRATIVE: CASE EVENT DATE: 20050526
